FAERS Safety Report 20360821 (Version 2)
Quarter: 2022Q2

REPORT INFORMATION
  Report Type: Spontaneous
  Country: US (occurrence: US)
  Receive Date: 20220121
  Receipt Date: 20220618
  Transmission Date: 20220720
  Serious: No
  Sender: FDA-Public Use
  Company Number: US-SA-SAC20220118000851

PATIENT
  Age: 61 Year
  Sex: Female

DRUGS (1)
  1. DUPIXENT [Suspect]
     Active Substance: DUPILUMAB
     Dosage: 300 MG (FREQUENCY: OTHER)
     Route: 058
     Dates: start: 202112

REACTIONS (4)
  - Headache [Unknown]
  - Vision blurred [Unknown]
  - Eye pain [Unknown]
  - Dry eye [Unknown]

NARRATIVE: CASE EVENT DATE: 20220103
